FAERS Safety Report 7395655-6 (Version None)
Quarter: 2011Q2

REPORT INFORMATION
  Report Type: 
  Country: None (occurrence: None)
  Receive Date: 20110405
  Receipt Date: 20110309
  Transmission Date: 20111010
  Serious: No
  Sender: FDA-Public Use
  Company Number: US-B.I. PHARMACEUTICALS,INC./RIDGEFIELD-2011-BP-07511BP

PATIENT
  Sex: Female

DRUGS (5)
  1. VASOTEC [Concomitant]
     Indication: HYPERTENSION
     Dosage: 40 MG
  2. HYDROCHLOROTHIAZIDE [Concomitant]
     Indication: DIURETIC THERAPY
     Dosage: 25 MG
  3. PRADAXA [Suspect]
     Indication: ATRIAL FIBRILLATION
     Dosage: 300 MG
     Route: 048
     Dates: start: 20110213, end: 20110225
  4. LIPITOR [Concomitant]
     Indication: BLOOD CHOLESTEROL INCREASED
     Dosage: 20 MG
  5. COREG [Concomitant]
     Indication: HYPERTENSION
     Dosage: 25 MG

REACTIONS (5)
  - DYSPNOEA [None]
  - WEIGHT DECREASED [None]
  - FATIGUE [None]
  - ABDOMINAL PAIN UPPER [None]
  - DIARRHOEA [None]
